FAERS Safety Report 12250137 (Version 2)
Quarter: 2016Q3

REPORT INFORMATION
  Report Type: Report from Study
  Country: DE (occurrence: DE)
  Receive Date: 20160408
  Receipt Date: 20160722
  Transmission Date: 20161109
  Serious: Yes (Hospitalization, Disabling, Other)
  Sender: FDA-Public Use
  Company Number: DE-B.I. PHARMACEUTICALS,INC./RIDGEFIELD-2016-BI-20741DE

PATIENT
  Sex: Male
  Weight: 70 kg

DRUGS (5)
  1. VALDOXAN [Concomitant]
     Active Substance: AGOMELATINE
     Indication: HYPERTENSION
     Route: 048
  2. PREGABALIN. [Concomitant]
     Active Substance: PREGABALIN
     Indication: PAIN
     Route: 048
  3. RESTEX [Concomitant]
     Active Substance: BENSERAZIDE
     Indication: PRODUCT USED FOR UNKNOWN INDICATION
     Dosage: RETARD
     Route: 048
  4. CIPRALEX [Concomitant]
     Active Substance: ESCITALOPRAM OXALATE
     Indication: DEPRESSION
     Route: 048
  5. PRADAXA [Suspect]
     Active Substance: DABIGATRAN ETEXILATE MESYLATE
     Indication: ATRIAL FIBRILLATION
     Dosage: 220 MG
     Route: 048

REACTIONS (1)
  - Ischaemic stroke [Not Recovered/Not Resolved]

NARRATIVE: CASE EVENT DATE: 20160315
